FAERS Safety Report 9530598 (Version 3)
Quarter: 2013Q4

REPORT INFORMATION
  Report Type: Spontaneous
  Country: US (occurrence: US)
  Receive Date: 20130918
  Receipt Date: 20131205
  Transmission Date: 20140711
  Serious: No
  Sender: FDA-Public Use
  Company Number: US-BIOGENIDEC-2013BI089986

PATIENT
  Age: 56 Year
  Sex: Female

DRUGS (7)
  1. TYSABRI [Suspect]
     Indication: PRODUCT USED FOR UNKNOWN INDICATION
     Route: 042
     Dates: start: 20100217
  2. AMPYRA [Concomitant]
     Indication: GAIT DISTURBANCE
     Route: 048
     Dates: start: 20121004, end: 2013
  3. NAPROXEN [Concomitant]
     Route: 048
  4. VITAMIN D [Concomitant]
     Route: 048
  5. FISH OIL [Concomitant]
     Route: 048
  6. CITALOPRAM [Concomitant]
     Route: 048
  7. BACLOFEN [Concomitant]
     Route: 048

REACTIONS (7)
  - Cough [Not Recovered/Not Resolved]
  - Gait disturbance [Not Recovered/Not Resolved]
  - Dyslipidaemia [Not Recovered/Not Resolved]
  - Dysthymic disorder [Unknown]
  - Vitamin D deficiency [Not Recovered/Not Resolved]
  - Alopecia [Recovered/Resolved]
  - Nasopharyngitis [Not Recovered/Not Resolved]
